FAERS Safety Report 8203213-6 (Version None)
Quarter: 2012Q1

REPORT INFORMATION
  Report Type: 
  Country: None (occurrence: None)
  Receive Date: 20120312
  Receipt Date: 20120227
  Transmission Date: 20120608
  Serious: Yes (Hospitalization, Other)
  Sender: FDA-Public Use
  Company Number: US-ROCHE-1012771

PATIENT
  Sex: Female
  Weight: 45.4 kg

DRUGS (2)
  1. ACCUTANE [Suspect]
     Indication: PRODUCT USED FOR UNKNOWN INDICATION
     Route: 065
     Dates: start: 19870101
  2. ACCUTANE [Suspect]
     Route: 065
     Dates: start: 19860101, end: 19870101

REACTIONS (14)
  - ANAL FISTULA [None]
  - DEPRESSION [None]
  - SELF ESTEEM DECREASED [None]
  - INJURY [None]
  - CROHN'S DISEASE [None]
  - HAEMORRHOIDS [None]
  - RECTAL HAEMORRHAGE [None]
  - INTESTINAL OBSTRUCTION [None]
  - RECTAL ABSCESS [None]
  - STRESS [None]
  - COLITIS [None]
  - ANAL FISSURE [None]
  - GASTROOESOPHAGEAL REFLUX DISEASE [None]
  - ANXIETY [None]
